FAERS Safety Report 8800015 (Version 4)
Quarter: 2014Q3

REPORT INFORMATION
  Report Type: Report from Study
  Country: JP (occurrence: JP)
  Receive Date: 20120921
  Receipt Date: 20140827
  Transmission Date: 20150326
  Serious: Yes (Hospitalization)
  Sender: FDA-Public Use
  Company Number: JP-009507513-1202USA01492

PATIENT
  Age: 70 Year
  Sex: Female
  Weight: 62 kg

DRUGS (11)
  1. PLETAAL [Concomitant]
     Active Substance: CILOSTAZOL
     Indication: LACUNAR INFARCTION
     Dosage: 50 MG, BID
     Route: 048
     Dates: start: 20050903, end: 20110617
  2. MICARDIS [Concomitant]
     Active Substance: TELMISARTAN
     Indication: HYPERTENSION
     Dosage: 20 MG, QD
     Route: 048
     Dates: start: 20050310, end: 20110805
  3. GLUFAST [Concomitant]
     Active Substance: MITIGLINIDE
     Indication: TYPE 2 DIABETES MELLITUS
     Dosage: 10 MG, TID
     Route: 048
     Dates: start: 20061212
  4. JANUVIA [Suspect]
     Active Substance: SITAGLIPTIN PHOSPHATE
     Indication: TYPE 2 DIABETES MELLITUS
     Dosage: 50 MG, QD AFTER BREAKFAST
     Route: 048
     Dates: start: 20101025
  5. MEVALOTIN [Concomitant]
     Active Substance: PRAVASTATIN SODIUM
     Indication: HYPERCHOLESTEROLAEMIA
     Dosage: 10 MG, BID
     Route: 048
     Dates: start: 20020617, end: 20110617
  6. METFORMIN [Concomitant]
     Active Substance: METFORMIN HYDROCHLORIDE
     Indication: TYPE 2 DIABETES MELLITUS
     Dosage: 500 MG, BID
     Route: 048
     Dates: start: 20071006
  7. MICAMLO [Concomitant]
     Active Substance: AMLODIPINE BESYLATE\TELMISARTAN
     Indication: HYPERTENSION
     Dosage: DAILY DOSE: 40MG+5MG
     Route: 048
     Dates: start: 20120225
  8. PLETAAL [Concomitant]
     Active Substance: CILOSTAZOL
     Indication: CAROTID ARTERIOSCLEROSIS
  9. BAYASPIRIN [Concomitant]
     Active Substance: ASPIRIN
     Indication: ANGINA UNSTABLE
     Dosage: 100 MG, QD
     Route: 048
     Dates: start: 20110618
  10. PLAVIX [Concomitant]
     Active Substance: CLOPIDOGREL BISULFATE
     Indication: ANGINA UNSTABLE
     Dosage: 50 MG, QD
     Route: 048
     Dates: start: 20110618
  11. LIPITOR [Concomitant]
     Active Substance: ATORVASTATIN CALCIUM
     Indication: HYPERCHOLESTEROLAEMIA
     Dosage: 20 MG, QD
     Route: 048
     Dates: start: 20110618

REACTIONS (3)
  - Glycosylated haemoglobin increased [Recovering/Resolving]
  - Angina unstable [Recovering/Resolving]
  - Blood glucose increased [Recovering/Resolving]

NARRATIVE: CASE EVENT DATE: 20110418
